FAERS Safety Report 15981626 (Version 1)
Quarter: 2019Q1

REPORT INFORMATION
  Report Type: Spontaneous
  Country: US (occurrence: US)
  Receive Date: 20190219
  Receipt Date: 20190219
  Transmission Date: 20190418
  Serious: Yes (Other)
  Sender: FDA-Public Use
  Company Number: US-TEVA-2019-US-1012698

PATIENT
  Sex: Male

DRUGS (2)
  1. BUPROPION HYDROCHLORIDE. [Suspect]
     Active Substance: BUPROPION HYDROCHLORIDE
     Indication: ANXIETY
     Dates: start: 2017
  2. BUPROPION HYDROCHLORIDE (WATSON) [Suspect]
     Active Substance: BUPROPION HYDROCHLORIDE
     Indication: ANXIETY

REACTIONS (5)
  - Dizziness [Unknown]
  - Alopecia [Unknown]
  - Presyncope [Unknown]
  - Heart rate increased [Unknown]
  - Cardiac flutter [Unknown]

NARRATIVE: CASE EVENT DATE: 2017
